FAERS Safety Report 5250376-0 (Version None)
Quarter: 2007Q1

REPORT INFORMATION
  Report Type: 
  Country: None (occurrence: None)
  Receive Date: 20070228
  Receipt Date: 20060417
  Transmission Date: 20070707
  Serious: No
  Sender: FDA-Public Use
  Company Number: US-GLAXOSMITHKLINE-A0600592A

PATIENT
  Age: 34 Year
  Sex: Female
  Weight: 69.1 kg

DRUGS (2)
  1. LAMICTAL [Suspect]
     Indication: EPILEPSY
     Route: 048
     Dates: start: 20040801, end: 20050101
  2. NEURONTIN [Concomitant]
     Indication: EPILEPSY
     Dosage: 300MG PER DAY

REACTIONS (2)
  - ADVERSE DRUG REACTION [None]
  - RASH PAPULAR [None]
